FAERS Safety Report 19649743 (Version 1)
Quarter: 2021Q3

REPORT INFORMATION
  Report Type: Spontaneous
  Country: US (occurrence: US)
  Receive Date: 20210803
  Receipt Date: 20210803
  Transmission Date: 20211014
  Serious: No
  Sender: FDA-Public Use
  Company Number: US-STRIDES ARCOLAB LIMITED-2021SP006124

PATIENT
  Age: 31 Year
  Sex: Female

DRUGS (5)
  1. DESONIDE. [Concomitant]
     Active Substance: DESONIDE
     Indication: LICHEN PLANUS
     Dosage: 0.05 PERCENT, QD
     Route: 065
  2. CYCLOSPORINE. [Suspect]
     Active Substance: CYCLOSPORINE
     Indication: LICHEN PLANUS
     Dosage: 300 MILLIGRAM, QD
     Route: 065
  3. COLCHICINE. [Suspect]
     Active Substance: COLCHICINE
     Indication: LICHEN PLANUS
     Dosage: 1.2 UNK, QD
     Route: 065
  4. MYCOPHENOLATE MOFETIL. [Suspect]
     Active Substance: MYCOPHENOLATE MOFETIL
     Indication: LICHEN PLANUS
     Dosage: 3000 MILLIGRAM, QD
     Route: 065
  5. TACROLIMUS. [Concomitant]
     Active Substance: TACROLIMUS
     Indication: LICHEN PLANUS
     Dosage: 0.1 PERCENT
     Route: 061

REACTIONS (1)
  - Off label use [Unknown]
